FAERS Safety Report 15549394 (Version 3)
Quarter: 2019Q4

REPORT INFORMATION
  Report Type: Spontaneous
  Country: US (occurrence: US)
  Receive Date: 20181025
  Receipt Date: 20191119
  Transmission Date: 20200122
  Serious: Yes (Other)
  Sender: FDA-Public Use
  Company Number: US-PFIZER INC-2018435725

PATIENT
  Age: 66 Year
  Sex: Female

DRUGS (2)
  1. VALACYCLOVIR HCL [Suspect]
     Active Substance: VALACYCLOVIR HYDROCHLORIDE
  2. XELJANZ XR [Suspect]
     Active Substance: TOFACITINIB CITRATE
     Dosage: 11 MG, UNK

REACTIONS (4)
  - Joint swelling [Not Recovered/Not Resolved]
  - Arthralgia [Unknown]
  - Renal failure [Unknown]
  - Product prescribing error [Unknown]
